FAERS Safety Report 8244787-9 (Version None)
Quarter: 2012Q1

REPORT INFORMATION
  Report Type: 
  Country: None (occurrence: None)
  Receive Date: 20120329
  Receipt Date: 20110407
  Transmission Date: 20120608
  Serious: No
  Sender: FDA-Public Use
  Company Number: US-MYLANLABS-2011S1007452

PATIENT
  Age: 77 Year
  Sex: Female
  Weight: 48.54 kg

DRUGS (4)
  1. FENTANYL-100 [Suspect]
     Indication: SCOLIOSIS
     Dosage: CHANGED Q48H.
     Route: 062
     Dates: start: 20080101
  2. ACETAMINOPHEN [Concomitant]
     Indication: HEADACHE
  3. FENTANYL-100 [Suspect]
     Dosage: CHANGED Q48H.
     Route: 062
     Dates: start: 20080101
  4. SIMVASTATIN [Concomitant]
     Indication: BLOOD CHOLESTEROL

REACTIONS (5)
  - DIPLOPIA [None]
  - DIZZINESS [None]
  - DRUG INEFFECTIVE [None]
  - FATIGUE [None]
  - PAIN [None]
